FAERS Safety Report 9629622 (Version 1)
Quarter: 2013Q4

REPORT INFORMATION
  Report Type: Spontaneous
  Country: US (occurrence: US)
  Receive Date: 20131017
  Receipt Date: 20131017
  Transmission Date: 20140711
  Serious: Yes (Hospitalization, Other)
  Sender: FDA-Public Use
  Company Number: US-BAYER-2013-124215

PATIENT
  Age: 34 Year
  Sex: Female
  Weight: 71 kg

DRUGS (6)
  1. YAZ [Suspect]
  2. YASMIN [Suspect]
  3. FLUOXETINE [Concomitant]
     Dosage: 20 MG, UNK
     Route: 048
  4. TRAZODONE [Concomitant]
     Dosage: 100 MG, HS
     Route: 048
  5. NAPROSYN [Concomitant]
  6. VICODIN [Concomitant]
     Dosage: AS NEEDED

REACTIONS (3)
  - Cholecystitis [None]
  - Deep vein thrombosis [None]
  - Pulmonary embolism [None]
